FAERS Safety Report 4462798-6 (Version None)
Quarter: 2004Q3

REPORT INFORMATION
  Report Type: 
  Country: None (occurrence: None)
  Receive Date: 20040927
  Receipt Date: 20040917
  Transmission Date: 20050211
  Serious: Yes (Hospitalization, Disabling)
  Sender: FDA-Public Use
  Company Number: HQ5127308NOV2002

PATIENT
  Age: 38 Year
  Sex: Female

DRUGS (3)
  1. DIMETAPP [Suspect]
     Indication: NASOPHARYNGITIS
     Dosage: AS DIRECTED, ORAL
     Route: 048
     Dates: start: 20000916, end: 20000919
  2. ALKA-SELTZER PLUS COLD (ACETYLSALICYLIC ACID) CHLORPHENAMINEMALEATE/PH [Suspect]
     Indication: NASOPHARYNGITIS
     Dosage: AS DIRECTED,ORAL
     Route: 048
     Dates: start: 20000916
  3. DEXATRIM (CAFFEINE/PHENYLPROPANOLAMINE HYDROCHLORIDE, ) [Suspect]
     Indication: WEIGHT CONTROL
     Dosage: 1 CAPLET DAILY, ORAL
     Route: 048
     Dates: start: 20000901, end: 20000919

REACTIONS (6)
  - AFFECT LABILITY [None]
  - AMNESIA [None]
  - CEREBROVASCULAR SPASM [None]
  - DEPRESSION [None]
  - INTRACRANIAL ANEURYSM [None]
  - SUBARACHNOID HAEMORRHAGE [None]
